FAERS Safety Report 4790996-0 (Version None)
Quarter: 2005Q4

REPORT INFORMATION
  Report Type: 
  Country: None (occurrence: None)
  Receive Date: 20051005
  Receipt Date: 20050919
  Transmission Date: 20060501
  Serious: Yes (Hospitalization, Other)
  Sender: FDA-Public Use
  Company Number: US_0509121498

PATIENT
  Age: 51 Year
  Sex: Female
  Weight: 93 kg

DRUGS (4)
  1. ZYPREXA [Suspect]
     Indication: ANXIETY
     Dosage: 10 MG
     Dates: start: 20010214
  2. ATENOLOL [Concomitant]
  3. TRIAMCINOLONE [Concomitant]
  4. LITHIUM [Concomitant]

REACTIONS (8)
  - ATRIOVENTRICULAR BLOCK FIRST DEGREE [None]
  - CARDIOMEGALY [None]
  - CHOLECYSTITIS INFECTIVE [None]
  - DIABETES MELLITUS [None]
  - ELECTROCARDIOGRAM T WAVE ABNORMAL [None]
  - GLYCOSYLATED HAEMOGLOBIN INCREASED [None]
  - MIXED INCONTINENCE [None]
  - PAIN [None]
